FAERS Safety Report 25032104 (Version 2)
Quarter: 2025Q4

REPORT INFORMATION
  Report Type: Spontaneous
  Country: US (occurrence: US)
  Receive Date: 20250303
  Receipt Date: 20251110
  Transmission Date: 20260118
  Serious: No
  Sender: INCYTE
  Company Number: US-EVENT-001715

PATIENT

DRUGS (1)
  1. OPZELURA [Suspect]
     Active Substance: RUXOLITINIB PHOSPHATE
     Indication: Eczema
     Dosage: UNK, QD
     Route: 065

REACTIONS (5)
  - Bronchitis [Unknown]
  - Expired product administered [Unknown]
  - Product dose omission issue [Unknown]
  - Product physical issue [Unknown]
  - Therapeutic product effect decreased [Unknown]
